FAERS Safety Report 6656683-9 (Version None)
Quarter: 2010Q1

REPORT INFORMATION
  Report Type: 
  Country: None (occurrence: None)
  Receive Date: 20100329
  Receipt Date: 20100315
  Transmission Date: 20100710
  Serious: Yes (Hospitalization)
  Sender: FDA-Public Use
  Company Number: IL-MEDIMMUNE-MEDI-0010820

PATIENT
  Sex: Male
  Weight: 6.1 kg

DRUGS (2)
  1. SYNAGIS [Suspect]
     Route: 030
     Dates: start: 20091109, end: 20100111
  2. SYNAGIS [Suspect]
     Route: 030
     Dates: start: 20100315

REACTIONS (3)
  - DECREASED APPETITE [None]
  - RESPIRATORY SYNCYTIAL VIRUS INFECTION [None]
  - WHEEZING [None]
